FAERS Safety Report 18634077 (Version 6)
Quarter: 2022Q4

REPORT INFORMATION
  Report Type: Report from Study
  Country: DE (occurrence: DE)
  Receive Date: 20201218
  Receipt Date: 20221215
  Transmission Date: 20230112
  Serious: Yes (Life-Threatening)
  Sender: FDA-Public Use
  Company Number: DE-002147023-NVSC2020DE328785

PATIENT
  Sex: Female
  Weight: 75 kg

DRUGS (6)
  1. EXEMESTANE [Suspect]
     Active Substance: EXEMESTANE
     Indication: Breast cancer metastatic
     Dosage: 25 MG, 1X/DAY
     Route: 048
     Dates: start: 20190412
  2. KISQALI [Suspect]
     Active Substance: RIBOCICLIB
     Indication: Breast cancer metastatic
     Dosage: 600 MG,  QD 21 DAYS INTAKE, 7 DAYS PAUSE
     Route: 048
     Dates: start: 20190412, end: 20200126
  3. KISQALI [Suspect]
     Active Substance: RIBOCICLIB
     Dosage: 400 MG, QD
     Route: 048
     Dates: start: 20200127, end: 20200127
  4. KISQALI [Suspect]
     Active Substance: RIBOCICLIB
     Dosage: 600 MG, QD 21 DAYS INTAKE, 7 DAYS PAUSE
     Route: 048
     Dates: start: 20200128, end: 20201123
  5. KISQALI [Suspect]
     Active Substance: RIBOCICLIB
     Dosage: 400 MG, QD 21 DAYS INTAKE, 7 DAYS PAUSE
     Route: 048
     Dates: start: 20201202, end: 20220529
  6. KISQALI [Suspect]
     Active Substance: RIBOCICLIB
     Dosage: 400 MG (14 DAYS INTAKE, 14 DAYS PAUSE)
     Route: 048
     Dates: start: 20220530

REACTIONS (1)
  - Lipase increased [Recovered/Resolved]

NARRATIVE: CASE EVENT DATE: 20200724
